FAERS Safety Report 9559118 (Version 2)
Quarter: 2013Q4

REPORT INFORMATION
  Report Type: Spontaneous
  Country: US (occurrence: US)
  Receive Date: 20130927
  Receipt Date: 20131001
  Transmission Date: 20140711
  Serious: Yes (Hospitalization, Other)
  Sender: FDA-Public Use
  Company Number: US-MERCK-1309USA011514

PATIENT
  Sex: Female

DRUGS (2)
  1. INVANZ [Suspect]
     Indication: URINARY TRACT INFECTION
     Dosage: UNK
     Route: 042
  2. COZAAR [Concomitant]
     Route: 048

REACTIONS (8)
  - Lip swelling [Not Recovered/Not Resolved]
  - Swollen tongue [Not Recovered/Not Resolved]
  - Local swelling [Not Recovered/Not Resolved]
  - Bladder cancer [Unknown]
  - Muscular weakness [Recovered/Resolved]
  - Gait disturbance [Unknown]
  - Nephrolithiasis [Unknown]
  - Pruritus [Unknown]
